FAERS Safety Report 7245506-5 (Version None)
Quarter: 2011Q1

REPORT INFORMATION
  Report Type: 
  Country: None (occurrence: None)
  Receive Date: 20110126
  Receipt Date: 20110124
  Transmission Date: 20110831
  Serious: Yes (Hospitalization)
  Sender: FDA-Public Use
  Company Number: DE-ABBOTT-11P-062-0700176-00

PATIENT
  Sex: Female
  Weight: 65 kg

DRUGS (1)
  1. ZEMPLAR [Suspect]
     Indication: PROTEINURIA
     Route: 048
     Dates: start: 20100521, end: 20110120

REACTIONS (2)
  - RENAL FAILURE [None]
  - BLOOD CREATININE INCREASED [None]
